FAERS Safety Report 6731842-5 (Version None)
Quarter: 2010Q2

REPORT INFORMATION
  Report Type: 
  Country: None (occurrence: None)
  Receive Date: 20100519
  Receipt Date: 20100519
  Transmission Date: 20101027
  Serious: Yes (Hospitalization)
  Sender: FDA-Public Use
  Company Number: None

PATIENT
  Sex: Female
  Weight: 18.1439 kg

DRUGS (2)
  1. BENADRYL [Suspect]
     Indication: NASAL CONGESTION
     Dosage: AS INDICATED PO
     Route: 048
     Dates: start: 20091201, end: 20100417
  2. BENADRYL [Suspect]
     Indication: PYREXIA
     Dosage: AS INDICATED PO
     Route: 048
     Dates: start: 20091201, end: 20100417

REACTIONS (4)
  - LARGE INTESTINAL ULCER [None]
  - POOR QUALITY DRUG ADMINISTERED [None]
  - PRODUCT QUALITY ISSUE [None]
  - SMALL INTESTINE ULCER [None]
